FAERS Safety Report 25600286 (Version 1)
Quarter: 2025Q3

REPORT INFORMATION
  Report Type: Spontaneous
  Country: US (occurrence: US)
  Receive Date: 20250724
  Receipt Date: 20250724
  Transmission Date: 20251021
  Serious: Yes (Death, Hospitalization, Other)
  Sender: AZURITY PHARMACEUTICALS
  Company Number: US-AZURITY PHARMACEUTICALS, INC.-AZR202507-002108

PATIENT
  Age: 54 Year
  Sex: Female

DRUGS (1)
  1. MYCOPHENOLATE MOFETIL [Suspect]
     Active Substance: MYCOPHENOLATE MOFETIL
     Indication: IgA nephropathy
     Route: 065

REACTIONS (6)
  - Haemophagocytic lymphohistiocytosis [Not Recovered/Not Resolved]
  - Septic shock [Fatal]
  - Bacteraemia [Fatal]
  - Histoplasmosis disseminated [Not Recovered/Not Resolved]
  - Gastrointestinal haemorrhage [Not Recovered/Not Resolved]
  - COVID-19 [Unknown]
